FAERS Safety Report 12836916 (Version 3)
Quarter: 2017Q1

REPORT INFORMATION
  Report Type: Spontaneous
  Country: CZ (occurrence: CZ)
  Receive Date: 20161011
  Receipt Date: 20170315
  Transmission Date: 20170428
  Serious: Yes (Hospitalization, Other)
  Sender: FDA-Public Use
  Company Number: CZ-TEVA-698294ROM

PATIENT
  Age: 66 Year
  Sex: Male

DRUGS (3)
  1. INSULIN [Concomitant]
     Active Substance: INSULIN NOS
     Indication: TYPE 2 DIABETES MELLITUS
  2. CEFUROXIME. [Suspect]
     Active Substance: CEFUROXIME
     Indication: ANTIBIOTIC PROPHYLAXIS
     Route: 065
  3. METFORMIN [Suspect]
     Active Substance: METFORMIN HYDROCHLORIDE
     Indication: TYPE 2 DIABETES MELLITUS
     Route: 048

REACTIONS (11)
  - Acute kidney injury [Recovered/Resolved]
  - Syncope [Recovered/Resolved]
  - Metabolic acidosis [Recovered/Resolved]
  - Urticaria [Unknown]
  - Hypoglycaemia [Recovered/Resolved]
  - Fall [Recovered/Resolved]
  - Systemic infection [Recovered/Resolved]
  - Hyperlactacidaemia [Recovered/Resolved]
  - Shock [Recovering/Resolving]
  - Nephritis allergic [Recovered/Resolved]
  - Lactic acidosis [Recovered/Resolved]

NARRATIVE: CASE EVENT DATE: 201404
